FAERS Safety Report 14432580 (Version 1)
Quarter: 2018Q1

REPORT INFORMATION
  Report Type: Spontaneous
  Country: US (occurrence: US)
  Receive Date: 20180124
  Receipt Date: 20180124
  Transmission Date: 20180509
  Serious: No
  Sender: FDA-Public Use
  Company Number: US-BAYER-2018-011668

PATIENT
  Age: 72 Year
  Sex: Male
  Weight: 87.98 kg

DRUGS (2)
  1. APIXABAN [Concomitant]
     Active Substance: APIXABAN
  2. MIRALAX [Suspect]
     Active Substance: POLYETHYLENE GLYCOL 3350
     Indication: GASTROINTESTINAL DISORDER
     Dosage: 1 DF, UNK
     Route: 048
     Dates: start: 201710

REACTIONS (5)
  - Blood sodium increased [Not Recovered/Not Resolved]
  - Product use issue [Unknown]
  - Blood potassium increased [Not Recovered/Not Resolved]
  - Circumstance or information capable of leading to medication error [Unknown]
  - Product prescribing issue [Unknown]

NARRATIVE: CASE EVENT DATE: 201801
